FAERS Safety Report 8054886-2 (Version None)
Quarter: 2012Q1

REPORT INFORMATION
  Report Type: 
  Country: None (occurrence: None)
  Receive Date: 20120119
  Receipt Date: 20120109
  Transmission Date: 20120608
  Serious: Yes (Hospitalization, Other)
  Sender: FDA-Public Use
  Company Number: US-BAYER-2011-038788

PATIENT
  Age: 40 Year
  Sex: Female
  Weight: 105 kg

DRUGS (3)
  1. METFORMIN HCL [Concomitant]
     Dosage: UNK
     Dates: start: 20030101, end: 20050901
  2. YASMIN [Suspect]
     Indication: CONTRACEPTION
     Dosage: UNK
     Dates: start: 20030601, end: 20061201
  3. CELEXA [Concomitant]
     Dosage: UNK
     Dates: start: 20030501, end: 20030901

REACTIONS (6)
  - GALLBLADDER DISORDER [None]
  - ANHEDONIA [None]
  - ANXIETY [None]
  - CHOLECYSTITIS CHRONIC [None]
  - BILIARY DYSKINESIA [None]
  - PAIN [None]
